FAERS Safety Report 5720517-7 (Version None)
Quarter: 2008Q2

REPORT INFORMATION
  Report Type: 
  Country: None (occurrence: None)
  Receive Date: 20080423
  Receipt Date: 20080201
  Transmission Date: 20081010
  Serious: Yes (Life-Threatening, Hospitalization, Other)
  Sender: FDA-Public Use
  Company Number: WAES 0802USA00440

PATIENT
  Age: 10 Year
  Sex: Male

DRUGS (4)
  1. SINGULAIR [Suspect]
     Dosage: 5 MG/DAILY/PO
     Route: 048
     Dates: end: 20080104
  2. ADVAIR DISKUS 100/50 [Concomitant]
  3. CLARITIN [Concomitant]
  4. ZYRTEC [Concomitant]

REACTIONS (1)
  - HEPATITIS CHOLESTATIC [None]
